FAERS Safety Report 15563420 (Version 3)
Quarter: 2019Q1

REPORT INFORMATION
  Report Type: Report from Study
  Country: US (occurrence: US)
  Receive Date: 20181029
  Receipt Date: 20190109
  Transmission Date: 20190417
  Serious: Yes (Hospitalization)
  Sender: FDA-Public Use
  Company Number: US-ACTELION-A-US2018-180814

PATIENT
  Age: 36 Year
  Sex: Female

DRUGS (1)
  1. OPSUMIT [Suspect]
     Active Substance: MACITENTAN
     Indication: PULMONARY HYPERTENSION
     Dosage: 10 MG, UNK
     Route: 048
     Dates: start: 20180326

REACTIONS (3)
  - Ovarian cyst [Unknown]
  - Treatment noncompliance [Unknown]
  - Product dose omission [Unknown]

NARRATIVE: CASE EVENT DATE: 20181213
